FAERS Safety Report 6263775-5 (Version None)
Quarter: 2009Q3

REPORT INFORMATION
  Report Type: 
  Country: None (occurrence: None)
  Receive Date: 20090710
  Receipt Date: 20090702
  Transmission Date: 20100115
  Serious: Yes (Other)
  Sender: FDA-Public Use
  Company Number: PHHY2009AU27204

PATIENT

DRUGS (1)
  1. STALEVO 100 [Suspect]

REACTIONS (4)
  - AUTONOMIC NERVOUS SYSTEM IMBALANCE [None]
  - BLOOD PRESSURE INCREASED [None]
  - HYPERHIDROSIS [None]
  - PALPITATIONS [None]
